FAERS Safety Report 6805140-5 (Version None)
Quarter: 2010Q2

REPORT INFORMATION
  Report Type: 
  Country: None (occurrence: None)
  Receive Date: 20100628
  Receipt Date: 20070820
  Transmission Date: 20101027
  Serious: No
  Sender: FDA-Public Use
  Company Number: US-PFIZER INC-2007069359

PATIENT
  Sex: Female
  Weight: 81.8 kg

DRUGS (6)
  1. XALATAN [Suspect]
     Indication: GLAUCOMA
     Dates: start: 20040101
  2. METFORMIN HCL [Concomitant]
  3. GLYBURIDE [Concomitant]
  4. HYZAAR [Concomitant]
     Indication: HYPERTENSION
  5. ATENOLOL [Concomitant]
     Indication: HYPERTENSION
  6. POTASSIUM [Concomitant]

REACTIONS (2)
  - ASTHENOPIA [None]
  - SINUS DISORDER [None]
